FAERS Safety Report 13110275 (Version 1)
Quarter: 2017Q1

REPORT INFORMATION
  Report Type: Spontaneous
  Country: US (occurrence: US)
  Receive Date: 20170112
  Receipt Date: 20170112
  Transmission Date: 20170428
  Serious: No
  Sender: FDA-Public Use
  Company Number: US-ROCHE-GNE302519

PATIENT
  Age: 88 Year
  Sex: Female

DRUGS (1)
  1. ACTIVASE [Suspect]
     Active Substance: ALTEPLASE
     Indication: ACUTE MYOCARDIAL INFARCTION
     Dosage: 50 MG, SINGLE
     Route: 042
     Dates: start: 20100529

REACTIONS (2)
  - Peripheral swelling [None]
  - Injection site extravasation [Unknown]

NARRATIVE: CASE EVENT DATE: 20100529
